FAERS Safety Report 10270100 (Version 2)
Quarter: 2014Q3

REPORT INFORMATION
  Report Type: Spontaneous
  Country: IT (occurrence: None)
  Receive Date: 20140626
  Receipt Date: 20140728
  Transmission Date: 20150326
  Serious: Yes (Hospitalization, Other)
  Sender: FDA-Public Use
  Company Number: AUR-APL-2014-06737

PATIENT
  Age: 77 Year
  Sex: Male

DRUGS (14)
  1. KANRENOL (POTASSIUM CANRENOATE) [Concomitant]
  2. EUTIROX (LEVOTHYROXINE SODIUM) [Concomitant]
     Active Substance: LEVOTHYROXINE SODIUM
  3. ESKIM (OMEGA-3 TRIGLYCERIDES) [Concomitant]
  4. PLAVIX [Concomitant]
     Active Substance: CLOPIDOGREL BISULFATE
  5. LASIX [Concomitant]
     Active Substance: FUROSEMIDE
  6. TAVOR [Suspect]
     Active Substance: LORAZEPAM
     Indication: ANXIETY
     Route: 048
     Dates: start: 20140101, end: 20140506
  7. SIVASTATIN (SIMVASTATIN) [Concomitant]
  8. PANTOPRAZOLE (PANTOPRAZOLE) [Concomitant]
     Active Substance: PANTOPRAZOLE SODIUM
  9. CONGESCOR (BISOPROLOL) [Concomitant]
  10. CARDIOASPIRIN (ACETYLSALICYLIC ACID) [Concomitant]
     Active Substance: ASPIRIN
  11. FERRO-GRAD (FERROUS SULFATE) [Concomitant]
  12. SERENASE /00015301/ (MEPROBAMATE) [Concomitant]
  13. MIRTAZAPINE. [Suspect]
     Active Substance: MIRTAZAPINE
     Indication: DEPRESSION
     Route: 048
     Dates: start: 20140506, end: 20140506
  14. LENTO KALIUM (POTASSIUM CHLORIDE) [Concomitant]

REACTIONS (4)
  - Cardiac disorder [None]
  - Sopor [None]
  - Pain in extremity [None]
  - Muscle spasms [None]

NARRATIVE: CASE EVENT DATE: 20140506
